FAERS Safety Report 9954218 (Version 1)
Quarter: 2014Q1

REPORT INFORMATION
  Report Type: Report from Study
  Country: US (occurrence: US)
  Receive Date: 20140304
  Receipt Date: 20140304
  Transmission Date: 20141002
  Serious: No
  Sender: FDA-Public Use
  Company Number: US-ABBVIE-13P-163-1078930-00

PATIENT
  Age: 46 Year
  Sex: Female

DRUGS (17)
  1. HUMIRA [Suspect]
     Indication: CROHN^S DISEASE
     Dosage: LOADING DOSE
     Dates: start: 20130415
  2. METHOTREXATE [Concomitant]
     Indication: DRUG THERAPY
     Dosage: ON FRIDAYS
     Dates: start: 20130412
  3. CRESTOR [Concomitant]
     Indication: BLOOD CHOLESTEROL
  4. ZYRTEC [Concomitant]
     Indication: HYPERSENSITIVITY
  5. CELEXA [Concomitant]
     Indication: ANXIETY
  6. FOLIC ACID [Concomitant]
     Indication: CROHN^S DISEASE
  7. ACYCLOVIR [Concomitant]
     Indication: GENITAL HERPES
  8. KLOR-CON [Concomitant]
     Indication: CROHN^S DISEASE
  9. PREDNISONE [Concomitant]
     Indication: CROHN^S DISEASE
  10. PREDNISONE [Concomitant]
     Indication: LUNG DISORDER
  11. LOSARTAN [Concomitant]
     Indication: HYPERTENSION
  12. MAG-OXIDE [Concomitant]
     Indication: CROHN^S DISEASE
  13. VITAMIN B-12 [Concomitant]
     Indication: CROHN^S DISEASE
  14. HUMALOG [Concomitant]
     Indication: PRODUCT USED FOR UNKNOWN INDICATION
     Dosage: SLIDING SCALE (X3-4) TIMES PER DAY
  15. LANTUS [Concomitant]
     Indication: PRODUCT USED FOR UNKNOWN INDICATION
     Dosage: AT BEDTIME
  16. NORCO [Concomitant]
     Indication: THORACOTOMY
     Dosage: AT BEDTIME AS NEEDED
  17. XANAX [Concomitant]
     Indication: INSOMNIA
     Dosage: AT BEDTIME

REACTIONS (3)
  - Abdominal discomfort [Recovered/Resolved]
  - Injection site pain [Recovered/Resolved]
  - Injection site pain [Recovered/Resolved]
